FAERS Safety Report 20003117 (Version 1)
Quarter: 2021Q4

REPORT INFORMATION
  Report Type: Report from Study
  Country: ES (occurrence: ES)
  Receive Date: 20211027
  Receipt Date: 20211027
  Transmission Date: 20220303
  Serious: Yes (Life-Threatening, Other)
  Sender: FDA-Public Use
  Company Number: ES-TAKEDA-2021TUS044530

PATIENT
  Age: 67 Year
  Sex: Male

DRUGS (3)
  1. VALGANCICLOVIR [Suspect]
     Active Substance: VALGANCICLOVIR
     Indication: Cytomegalovirus infection
     Dosage: UNK
     Route: 065
  2. BRENTUXIMAB VEDOTIN [Suspect]
     Active Substance: BRENTUXIMAB VEDOTIN
     Indication: Cytomegalovirus infection
     Dosage: UNK
     Route: 065
  3. CIDOFOVIR [Suspect]
     Active Substance: CIDOFOVIR
     Indication: Cytomegalovirus infection
     Dosage: UNK
     Route: 065

REACTIONS (3)
  - Toxicity to various agents [Unknown]
  - Off label use [Unknown]
  - Therapy partial responder [Unknown]
